FAERS Safety Report 8482896-X (Version None)
Quarter: 2012Q2

REPORT INFORMATION
  Report Type: 
  Country: None (occurrence: None)
  Receive Date: 20120626
  Receipt Date: 20120621
  Transmission Date: 20120825
  Serious: Yes (Death, Life-Threatening, Other)
  Sender: FDA-Public Use
  Company Number: 2012SP023580

PATIENT
  Age: 38 Year
  Sex: Male
  Weight: 57 kg

DRUGS (3)
  1. CARMUSTINE [Suspect]
     Indication: MALIGNANT OLIGODENDROGLIOMA
     Dosage: 260 MG;ONCE;IV
     Route: 042
     Dates: start: 20090122, end: 20090818
  2. TEMODAL [Suspect]
     Indication: MALIGNANT OLIGODENDROGLIOMA
     Dosage: 190 MG;QD;PO
     Route: 048
     Dates: start: 20090122, end: 20090822
  3. PREDNISOLONE [Concomitant]

REACTIONS (16)
  - HYPERVENTILATION [None]
  - PLEURAL EFFUSION [None]
  - ANXIETY [None]
  - DYSPNOEA EXERTIONAL [None]
  - GENERAL PHYSICAL HEALTH DETERIORATION [None]
  - ACUTE RESPIRATORY FAILURE [None]
  - LUNG DISORDER [None]
  - RHINITIS [None]
  - ASPIRATION BRONCHIAL [None]
  - STREPTOCOCCAL INFECTION [None]
  - ALANINE AMINOTRANSFERASE INCREASED [None]
  - STAPHYLOCOCCAL INFECTION [None]
  - ASPARTATE AMINOTRANSFERASE INCREASED [None]
  - IATROGENIC INJURY [None]
  - PNEUMOTHORAX [None]
  - BLOOD ALKALINE PHOSPHATASE INCREASED [None]
